FAERS Safety Report 4548499-4 (Version None)
Quarter: 2005Q1

REPORT INFORMATION
  Report Type: 
  Country: None (occurrence: None)
  Receive Date: 20050110
  Receipt Date: 20040823
  Transmission Date: 20050727
  Serious: Yes (Death, Hospitalization)
  Sender: FDA-Public Use
  Company Number: FR-GLAXOSMITHKLINE-B0343259A

PATIENT
  Age: 71 Year
  Sex: Male
  Weight: 90 kg

DRUGS (2)
  1. CLAMOXYL [Suspect]
     Indication: SUPERINFECTION LUNG
     Dosage: 3G PER DAY
     Route: 048
     Dates: start: 20040325, end: 20040402
  2. OXYGEN THERAPY [Concomitant]

REACTIONS (4)
  - ANTI FACTOR VIII ANTIBODY POSITIVE [None]
  - HAEMATOMA [None]
  - KAOLIN CEPHALIN CLOTTING TIME PROLONGED [None]
  - LUNG INFECTION [None]
